FAERS Safety Report 22684888 (Version 3)
Quarter: 2023Q4

REPORT INFORMATION
  Report Type: Report from Study
  Country: CA (occurrence: CA)
  Receive Date: 20230710
  Receipt Date: 20231012
  Transmission Date: 20240109
  Serious: Yes (Other)
  Sender: FDA-Public Use
  Company Number: CA-002147023-NVSC2023CA084394

PATIENT
  Age: 62 Year
  Sex: Female

DRUGS (2)
  1. COSENTYX [Suspect]
     Active Substance: SECUKINUMAB
     Indication: Psoriasis
     Dosage: 300 MG, QW (WEEKS 0, 1, 2, 3, AND 4)
     Route: 058
     Dates: start: 20230407
  2. COSENTYX [Suspect]
     Active Substance: SECUKINUMAB
     Dosage: 300 MG, QMO
     Route: 058

REACTIONS (17)
  - Autoimmune hepatitis [Unknown]
  - Tongue coated [Unknown]
  - Fatigue [Not Recovered/Not Resolved]
  - Myalgia [Not Recovered/Not Resolved]
  - Arthralgia [Unknown]
  - Skin sensitisation [Unknown]
  - Glossodynia [Unknown]
  - Dysphagia [Unknown]
  - Pruritus [Unknown]
  - Ear pain [Unknown]
  - Oral pain [Unknown]
  - Hyperhidrosis [Unknown]
  - Rash papular [Unknown]
  - Skin lesion [Unknown]
  - Rash [Unknown]
  - Oropharyngeal pain [Unknown]
  - Product supply issue [Unknown]

NARRATIVE: CASE EVENT DATE: 20230407
